FAERS Safety Report 16955986 (Version 1)
Quarter: 2019Q4

REPORT INFORMATION
  Report Type: Spontaneous
  Country: US (occurrence: US)
  Receive Date: 20190905
  Receipt Date: 20190905
  Transmission Date: 20200122
  Serious: Yes (Hospitalization)
  Sender: FDA-Public Use
  Company Number: None

PATIENT
  Age: 68 Year
  Sex: Male
  Weight: 99.3 kg

DRUGS (4)
  1. 5-FLUOROURACIL (5-FU) [Suspect]
     Active Substance: FLUOROURACIL
     Dates: end: 20190703
  2. XELODA [Suspect]
     Active Substance: CAPECITABINE
     Dates: end: 20190828
  3. LEUCOVORIN. [Suspect]
     Active Substance: LEUCOVORIN
     Dates: end: 20190703
  4. ELOXATIN [Suspect]
     Active Substance: OXALIPLATIN
     Dates: start: 20190703

REACTIONS (2)
  - Chills [None]
  - Pyrexia [None]

NARRATIVE: CASE EVENT DATE: 20190828
